FAERS Safety Report 5265275-8 (Version None)
Quarter: 2007Q1

REPORT INFORMATION
  Report Type: 
  Country: None (occurrence: None)
  Receive Date: 20061213
  Receipt Date: 20040628
  Transmission Date: 20070707
  Serious: Yes (Other)
  Sender: FDA-Public Use
  Company Number: 2004UW13408

PATIENT
  Age: 65 Year
  Sex: Male
  Weight: 73.0291 kg

DRUGS (3)
  1. IRESSA [Suspect]
     Indication: NON-SMALL CELL LUNG CANCER
  2. MORPHINE [Concomitant]
  3. TETRACYCLINE [Concomitant]

REACTIONS (3)
  - DERMATITIS EXFOLIATIVE [None]
  - LUNG DISORDER [None]
  - RASH [None]
